FAERS Safety Report 4486175-7 (Version None)
Quarter: 2004Q4

REPORT INFORMATION
  Report Type: 
  Country: None (occurrence: None)
  Receive Date: 20041021
  Receipt Date: 20041001
  Transmission Date: 20050328
  Serious: Yes (Hospitalization, Other)
  Sender: FDA-Public Use
  Company Number: RB-959-2004

PATIENT
  Age: 70 Year
  Sex: Male

DRUGS (2)
  1. BUPRENORPHINE HCL [Suspect]
     Indication: PAIN
     Dosage: 0.4MG
     Route: 054
     Dates: start: 20030702, end: 20030703
  2. BUPRENORPHINE HCL [Suspect]
     Indication: SPINAL COMPRESSION FRACTURE
     Dosage: 0.4MG
     Route: 054
     Dates: start: 20030702, end: 20030703

REACTIONS (4)
  - HEPATIC ENCEPHALOPATHY [None]
  - METABOLIC DISORDER [None]
  - OVERDOSE [None]
  - SOMNOLENCE [None]
